FAERS Safety Report 11843323 (Version 1)
Quarter: 2015Q4

REPORT INFORMATION
  Report Type: Spontaneous
  Country: US (occurrence: US)
  Receive Date: 20151217
  Receipt Date: 20151217
  Transmission Date: 20160305
  Serious: Yes (Hospitalization)
  Sender: FDA-Public Use
  Company Number: US-ROCHE-1678141

PATIENT
  Age: 36 Year
  Sex: Female

DRUGS (7)
  1. CROMOLYN [Concomitant]
     Active Substance: CROMOLYN
  2. OMALIZUMAB [Suspect]
     Active Substance: OMALIZUMAB
     Indication: ANGIOEDEMA
     Route: 065
  3. DOXEPIN [Concomitant]
     Active Substance: DOXEPIN
  4. EPINEPHRINE. [Concomitant]
     Active Substance: EPINEPHRINE
  5. MONTELUKAST [Concomitant]
     Active Substance: MONTELUKAST SODIUM
  6. HYDROXYCHLOROQUINE [Concomitant]
     Active Substance: HYDROXYCHLOROQUINE
  7. KETOTIFEN [Concomitant]
     Active Substance: KETOTIFEN

REACTIONS (1)
  - Anaphylactic reaction [Unknown]
